FAERS Safety Report 6963965-X (Version None)
Quarter: 2010Q3

REPORT INFORMATION
  Report Type: 
  Country: None (occurrence: None)
  Receive Date: 20100902
  Receipt Date: 20100902
  Transmission Date: 20110219
  Serious: Yes (Other)
  Sender: FDA-Public Use
  Company Number: None

PATIENT
  Age: 65 Year
  Sex: Female
  Weight: 71.6683 kg

DRUGS (2)
  1. 3M ESPE CLINPRO 5000 [Suspect]
     Indication: DENTAL FLUORIDE THERAPY
     Dosage: USED AT NIGHT TO BRUSH TEETH
  2. 3M ESPE CLINPRO 5000 [Suspect]
     Indication: SENSITIVITY OF TEETH
     Dosage: USED AT NIGHT TO BRUSH TEETH

REACTIONS (3)
  - DRY MOUTH [None]
  - MIDDLE INSOMNIA [None]
  - TOOTH DISORDER [None]
